FAERS Safety Report 7461806-8 (Version None)
Quarter: 2011Q2

REPORT INFORMATION
  Report Type: 
  Country: None (occurrence: None)
  Receive Date: 20110506
  Receipt Date: 20110427
  Transmission Date: 20111010
  Serious: Yes (Other)
  Sender: FDA-Public Use
  Company Number: GB-ELI_LILLY_AND_COMPANY-GB201104007698

PATIENT
  Age: 74 Year
  Sex: Female

DRUGS (1)
  1. HUMULIN 70/30 [Suspect]
     Dosage: UNK
     Dates: start: 20110101

REACTIONS (1)
  - VISUAL ACUITY REDUCED [None]
